FAERS Safety Report 20057565 (Version 1)
Quarter: 2021Q4

REPORT INFORMATION
  Report Type: Report from Study
  Country: US (occurrence: US)
  Receive Date: 20211111
  Receipt Date: 20211111
  Transmission Date: 20220303
  Serious: Yes (Other)
  Sender: FDA-Public Use
  Company Number: US-TAKEDA-2021TUS068537

PATIENT
  Sex: Male

DRUGS (19)
  1. IXAZOMIB [Suspect]
     Active Substance: IXAZOMIB
     Indication: T-cell type acute leukaemia
     Dosage: 3.4 MILLIGRAM
     Route: 048
     Dates: start: 20210909
  2. IXAZOMIB [Suspect]
     Active Substance: IXAZOMIB
     Dosage: 2 MICROGRAM/SQ. METER
     Route: 048
  3. VINCRISTINE [Suspect]
     Active Substance: VINCRISTINE
     Indication: T-cell type acute leukaemia
     Dosage: UNK
     Route: 065
     Dates: end: 20210923
  4. VINCRISTINE [Suspect]
     Active Substance: VINCRISTINE
     Dosage: UNK
     Route: 065
     Dates: start: 20210925
  5. DEXAMETHASONE [Suspect]
     Active Substance: DEXAMETHASONE
     Indication: T-cell type acute leukaemia
     Dosage: 8.5 MILLIGRAM, BID
     Route: 048
     Dates: start: 20210909
  6. DOXORUBICIN HYDROCHLORIDE [Suspect]
     Active Substance: DOXORUBICIN HYDROCHLORIDE
     Indication: T-cell type acute leukaemia
     Dosage: UNK
     Route: 065
  7. METHOTREXATE [Suspect]
     Active Substance: METHOTREXATE
     Indication: T-cell type acute leukaemia
     Dosage: UNK
     Route: 065
  8. ASPARAGINASE ERWINIA CHRYSANTHEMI [Suspect]
     Active Substance: ASPARAGINASE ERWINIA CHRYSANTHEMI
     Indication: T-cell type acute leukaemia
     Dosage: UNK UNK, QOD
     Route: 030
     Dates: start: 20210910, end: 20210920
  9. AMBISOME [Suspect]
     Active Substance: AMPHOTERICIN B
     Indication: T-cell type acute leukaemia
     Dosage: 592 MILLIGRAM, 1/WEEK
     Route: 042
     Dates: start: 20210909
  10. LOVENOX [Concomitant]
     Active Substance: ENOXAPARIN SODIUM
     Indication: Jugular vein thrombosis
     Dosage: 60 MILLIGRAM, Q12H
     Route: 042
     Dates: start: 20210322
  11. LOVENOX [Concomitant]
     Active Substance: ENOXAPARIN SODIUM
     Indication: Superior vena cava syndrome
  12. CHOLECALCIFEROL [Concomitant]
     Active Substance: CHOLECALCIFEROL
     Indication: Prophylaxis
     Dosage: UNK UNK, QD
     Route: 048
     Dates: start: 20210326
  13. DIPHENHYDRAMINE [Concomitant]
     Active Substance: DIPHENHYDRAMINE
     Indication: Premedication
     Dosage: 50 MILLIGRAM, QOD
     Route: 048
     Dates: start: 20210910, end: 20210920
  14. FAMOTIDINE [Concomitant]
     Active Substance: FAMOTIDINE
     Indication: Premedication
     Dosage: 20 MILLIGRAM, BID
     Route: 048
     Dates: start: 20210903, end: 20210923
  15. MICAFUNGIN [Concomitant]
     Active Substance: MICAFUNGIN
     Indication: Infection prophylaxis
     Dosage: 120 MILLIGRAM, QD
     Route: 042
     Dates: start: 20210910
  16. DOCUSATE SODIUM\SENNOSIDES A AND B [Concomitant]
     Active Substance: DOCUSATE SODIUM\SENNOSIDES A AND B
     Indication: Constipation
     Dosage: 100 MILLIGRAM
     Route: 048
     Dates: start: 202103
  17. LEVOFLOXACIN [Concomitant]
     Active Substance: LEVOFLOXACIN
     Indication: Antibiotic prophylaxis
     Dosage: 500 MILLIGRAM, QD
     Route: 042
     Dates: start: 20210912
  18. CEFEPIME [Concomitant]
     Active Substance: CEFEPIME HYDROCHLORIDE
     Indication: Pyrexia
     Dosage: 2000 MILLIGRAM, Q8HR
     Route: 042
     Dates: start: 20210924, end: 20210929
  19. CEFEPIME [Concomitant]
     Active Substance: CEFEPIME HYDROCHLORIDE
     Indication: Sepsis

REACTIONS (5)
  - Alanine aminotransferase increased [Recovered/Resolved]
  - Aspartate aminotransferase increased [Recovered/Resolved]
  - Peripheral sensory neuropathy [Recovered/Resolved]
  - Hypokalaemia [Recovered/Resolved]
  - Stomatitis [Recovered/Resolved]

NARRATIVE: CASE EVENT DATE: 20210910
